FAERS Safety Report 6688415-2 (Version None)
Quarter: 2010Q2

REPORT INFORMATION
  Report Type: 
  Country: None (occurrence: None)
  Receive Date: 20100420
  Receipt Date: 20100412
  Transmission Date: 20101027
  Serious: Yes (Hospitalization, Other)
  Sender: FDA-Public Use
  Company Number: DE-ELI_LILLY_AND_COMPANY-DE201004003031

PATIENT
  Sex: Male
  Weight: 84 kg

DRUGS (6)
  1. GEMCITABINE HCL [Suspect]
     Indication: NON-SMALL CELL LUNG CANCER
     Dosage: 1000 MG/M2, ONCE EVERY THREE WEEKS
     Route: 042
     Dates: start: 20100126
  2. GEMCITABINE HCL [Suspect]
     Dosage: 1976 MG/M2, ONCE EVERY THREE WEEKS
     Route: 042
  3. CETUXIMAB [Suspect]
     Indication: NON-SMALL CELL LUNG CANCER
     Dosage: 400 MG/M2, WEEKLY (1/W)
     Route: 042
     Dates: start: 20100126
  4. CETUXIMAB [Suspect]
     Dosage: 495 MG/M2, WEEKLY (1/W)
     Route: 042
  5. DOCETAXEL [Suspect]
     Indication: NON-SMALL CELL LUNG CANCER
     Dosage: 75 MG/M2, ONCE EVERY THREE WEEKS
     Route: 042
     Dates: start: 20100309
  6. DOCETAXEL [Suspect]
     Dosage: 150 MG/M2, ONCE EVERY THREE WEEKS
     Route: 042

REACTIONS (1)
  - DEEP VEIN THROMBOSIS [None]
